FAERS Safety Report 24874826 (Version 2)
Quarter: 2025Q1

REPORT INFORMATION
  Report Type: Report from Study
  Country: CA (occurrence: CA)
  Receive Date: 20250122
  Receipt Date: 20250213
  Transmission Date: 20250408
  Serious: Yes (Hospitalization)
  Sender: IPSEN BIOPHARMACEUTICALS, INC.
  Company Number: CA-IPSEN Group, Research and Development-2024-15502

PATIENT
  Age: 82 Year
  Sex: Female

DRUGS (15)
  1. LANREOTIDE ACETATE [Suspect]
     Active Substance: LANREOTIDE ACETATE
     Indication: Gastroenteropancreatic neuroendocrine tumour disease
     Dosage: DEEP SUBCUTANEOUS
     Route: 058
     Dates: start: 20240704
  2. ASPIRIN [Concomitant]
     Active Substance: ASPIRIN
  3. VITAMIN C [Concomitant]
     Active Substance: ASCORBIC ACID
  4. FERRITIN [Concomitant]
     Active Substance: FERRITIN
  5. VITAMIN D3 [Concomitant]
     Active Substance: CHOLECALCIFEROL
  6. JARDIANCE [Concomitant]
     Active Substance: EMPAGLIFLOZIN
  7. TRESIBA [Concomitant]
     Active Substance: INSULIN DEGLUDEC
  8. TELMISARTAN [Concomitant]
     Active Substance: TELMISARTAN
  9. ROSUVASTATIN [Concomitant]
     Active Substance: ROSUVASTATIN
  10. SYNTHROID [Concomitant]
     Active Substance: LEVOTHYROXINE SODIUM
  11. SOLIFENACIN [Concomitant]
     Active Substance: SOLIFENACIN
  12. RISEDRONATE SODIUM [Concomitant]
     Active Substance: RISEDRONATE SODIUM
  13. PANTOPRAZOLE [Concomitant]
     Active Substance: PANTOPRAZOLE
  14. METFORMIN [Concomitant]
     Active Substance: METFORMIN HYDROCHLORIDE
     Dates: start: 20240626
  15. EPREX [Concomitant]
     Active Substance: ERYTHROPOIETIN
     Dates: start: 20250110

REACTIONS (10)
  - Fall [Recovering/Resolving]
  - Asthenia [Not Recovered/Not Resolved]
  - Injection site pain [Unknown]
  - Head injury [Unknown]
  - Limb injury [Recovering/Resolving]
  - Contusion [Recovering/Resolving]
  - Arthralgia [Unknown]
  - Arthralgia [Unknown]
  - Vomiting [Recovered/Resolved]
  - Blood pressure increased [Not Recovered/Not Resolved]

NARRATIVE: CASE EVENT DATE: 20240704
